FAERS Safety Report 22653652 (Version 2)
Quarter: 2025Q3

REPORT INFORMATION
  Report Type: Spontaneous
  Country: EU (occurrence: EU)
  Receive Date: 20230629
  Receipt Date: 20250728
  Transmission Date: 20251020
  Serious: Yes (Other)
  Sender: AUROBINDO
  Company Number: EU-Orion Corporation ORION PHARMA-QUET2023-0012

PATIENT
  Age: 69 Year
  Sex: Female

DRUGS (5)
  1. QUETIAPINE [Suspect]
     Active Substance: QUETIAPINE
     Indication: Insomnia
     Dosage: 25 MILLIGRAM, ONCE A DAY
     Route: 065
  2. QUETIAPINE [Suspect]
     Active Substance: QUETIAPINE
     Dosage: 24 MILLIGRAM, ONCE A DAY
     Route: 065
  3. MIANSERIN [Concomitant]
     Active Substance: MIANSERIN
     Indication: Persistent depressive disorder
     Dosage: 10 MILLIGRAM, ONCE A DAY
     Route: 065
  4. MIANSERIN [Concomitant]
     Active Substance: MIANSERIN
     Dosage: 20 MILLIGRAM, ONCE A DAY
     Route: 065
  5. MIANSERIN [Concomitant]
     Active Substance: MIANSERIN
     Dosage: 30 MILLIGRAM, ONCE A DAY
     Route: 065

REACTIONS (13)
  - Anxiety [Recovered/Resolved]
  - Fear of death [Recovered/Resolved]
  - Asthenia [Recovered/Resolved]
  - Dizziness [Recovering/Resolving]
  - Malaise [Recovered/Resolved]
  - Palpitations [Recovering/Resolving]
  - Somnolence [Recovered/Resolved]
  - Toxicity to various agents [Unknown]
  - Anticholinergic syndrome [Unknown]
  - Insomnia [Recovered/Resolved]
  - Drug ineffective for unapproved indication [Unknown]
  - Product prescribing issue [Unknown]
  - Off label use [Unknown]
